FAERS Safety Report 17369473 (Version 1)
Quarter: 2020Q1

REPORT INFORMATION
  Report Type: Spontaneous
  Country: US (occurrence: US)
  Receive Date: 20200204
  Receipt Date: 20200204
  Transmission Date: 20200409
  Serious: Yes (Hospitalization, Other)
  Sender: FDA-Public Use
  Company Number: US-PIRAMAL ENTERPRISES LIMITED-T201600757

PATIENT

DRUGS (2)
  1. GABLOFEN [Suspect]
     Active Substance: BACLOFEN
     Indication: MUSCLE SPASTICITY
     Dosage: 315 MCG/DAY
     Route: 037
  2. GABLOFEN [Suspect]
     Active Substance: BACLOFEN
     Indication: SPINAL CORD INJURY
     Dosage: SERIES OF THREE THERAPEUTIC BOLUSES
     Route: 037

REACTIONS (4)
  - Muscle spasticity [Unknown]
  - Muscle spasms [Unknown]
  - Tremor [Unknown]
  - Device issue [Unknown]

NARRATIVE: CASE EVENT DATE: 2016
